FAERS Safety Report 21271833 (Version 1)
Quarter: 2022Q3

REPORT INFORMATION
  Report Type: Spontaneous
  Country: CA (occurrence: CA)
  Receive Date: 20220830
  Receipt Date: 20220830
  Transmission Date: 20221026
  Serious: Yes (Hospitalization)
  Sender: FDA-Public Use
  Company Number: CA-JNJFOC-20220851368

PATIENT
  Age: 79 Year
  Sex: Male

DRUGS (2)
  1. IMBRUVICA [Interacting]
     Active Substance: IBRUTINIB
     Indication: Product used for unknown indication
     Route: 048
  2. PAXLOVID [Suspect]
     Active Substance: NIRMATRELVIR\RITONAVIR
     Indication: COVID-19 immunisation
     Route: 048

REACTIONS (3)
  - Melaena [Unknown]
  - Drug interaction [Unknown]
  - Chronic gastrointestinal bleeding [Unknown]
